FAERS Safety Report 17013108 (Version 1)
Quarter: 2019Q4

REPORT INFORMATION
  Report Type: Spontaneous
  Country: US (occurrence: US)
  Receive Date: 20191001
  Receipt Date: 20191001
  Transmission Date: 20200122
  Serious: No
  Sender: FDA-Public Use
  Company Number: None

PATIENT
  Age: 75 Year
  Sex: Male
  Weight: 99.34 kg

DRUGS (1)
  1. DIVALPROEX [Suspect]
     Active Substance: DIVALPROEX SODIUM
     Route: 048
     Dates: start: 20190731, end: 20190820

REACTIONS (2)
  - Oedema peripheral [None]
  - Weight increased [None]

NARRATIVE: CASE EVENT DATE: 20190819
